FAERS Safety Report 7007382-5 (Version None)
Quarter: 2010Q3

REPORT INFORMATION
  Report Type: 
  Country: None (occurrence: None)
  Receive Date: 20100922
  Receipt Date: 20100910
  Transmission Date: 20110219
  Serious: Yes (Other)
  Sender: FDA-Public Use
  Company Number: JP-PFIZER INC-2010114906

PATIENT
  Age: 71 Year
  Sex: Female

DRUGS (1)
  1. LYRICA [Suspect]
     Dosage: 150MG/DAY
     Route: 048
     Dates: start: 20100705

REACTIONS (2)
  - CARDIAC FUNCTION TEST ABNORMAL [None]
  - OEDEMA [None]
